FAERS Safety Report 10331402 (Version 1)
Quarter: 2014Q3

REPORT INFORMATION
  Report Type: Spontaneous
  Country: US (occurrence: None)
  Receive Date: 20140721
  Receipt Date: 20140721
  Transmission Date: 20150326
  Serious: Yes (Hospitalization, Other)
  Sender: FDA-Public Use
  Company Number: None

PATIENT
  Age: 48 Year
  Sex: Female
  Weight: 89.5 kg

DRUGS (11)
  1. ACETAMINOPHEN. [Concomitant]
     Active Substance: ACETAMINOPHEN
  2. VANCOMYCIN [Concomitant]
     Active Substance: VANCOMYCIN
  3. DOCUSATE [Concomitant]
     Active Substance: DOCUSATE
  4. ERTAPENEM [Concomitant]
     Active Substance: ERTAPENEM
  5. ONDANSETRON [Concomitant]
     Active Substance: ONDANSETRON
  6. NORMAL SALINE [Concomitant]
     Active Substance: SODIUM CHLORIDE
  7. OXYCODONE [Concomitant]
     Active Substance: OXYCODONE
  8. SPORANOX [Suspect]
     Active Substance: ITRACONAZOLE\SODIUM CHLORIDE
     Indication: SPOROTRICHOSIS
     Route: 048
     Dates: start: 20140530, end: 20140531
  9. ENOXAPARIN [Concomitant]
     Active Substance: ENOXAPARIN
  10. HYDROMORPHONE [Concomitant]
     Active Substance: HYDROMORPHONE
  11. MAGNESIUM HYDROXIDE. [Concomitant]
     Active Substance: MAGNESIUM HYDROXIDE

REACTIONS (3)
  - Aspartate aminotransferase increased [None]
  - Hepatotoxicity [None]
  - Alanine aminotransferase increased [None]

NARRATIVE: CASE EVENT DATE: 20140531
